FAERS Safety Report 8895088 (Version 1)
Quarter: 2012Q4

REPORT INFORMATION
  Report Type: 
  Country: US (occurrence: US)
  Receive Date: 20121108
  Receipt Date: 20121108
  Transmission Date: 20130627
  Serious: Yes (Hospitalization, Other)
  Sender: FDA-Public Use
  Company Number: CHPA2012US022922

PATIENT
  Age: 52 Year
  Sex: Female

DRUGS (14)
  1. GAS-X EXTSTR CHEWABLE TABS CHERRY CREME [Suspect]
     Indication: ABDOMINAL DISTENSION
     Dosage: 2 DF, 2 to 3 TIMES, EVERY 2 WEEKS
     Route: 048
     Dates: start: 2002
  2. NEXIUM//ESOMEPRAZOLE SODIUM [Concomitant]
     Indication: REGURGITATION
     Dosage: 40 mg, BID
  3. SPIRONOLACTONE [Concomitant]
     Indication: KIDNEY SMALL
     Dosage: 25 mg, Unk
  4. SPIRONOLACTONE [Concomitant]
     Indication: URETERIC STENOSIS
  5. CARISOPRODOL [Concomitant]
     Indication: MUSCLE SPASMS
     Dosage: Unk, PRN
     Dates: start: 1991
  6. DRUG THERAPY NOS [Concomitant]
     Indication: PROPHYLAXIS
     Dosage: Unk, Unk
  7. BABY ASPIRIN [Concomitant]
     Indication: CARDIAC DISORDER
     Dosage: Unk, QOD
  8. ATENOLOL [Concomitant]
     Indication: CARDIAC DISORDER
     Dosage: 1 to 2 PILLS, A DAY
  9. CELEXA [Concomitant]
     Indication: DEPRESSION
     Dosage: Unk, Unk
  10. ADVIL//IBUPROFEN [Concomitant]
     Dosage: Unk, Unk
  11. NUPRIN [Concomitant]
     Dosage: Unk, Unk
  12. TYLENOL [Concomitant]
     Dosage: 2 PILLS, 2 to 3 TIMES A DAY
  13. BENADRYL//DIPHENHYDRAMINE HYDROCHLORIDE [Concomitant]
     Indication: HYPERSENSITIVITY
     Dosage: Unk, Unk
     Dates: start: 201112
  14. VICODIN ES [Concomitant]
     Dosage: Unk, Unk

REACTIONS (15)
  - Long QT syndrome [Not Recovered/Not Resolved]
  - Panic attack [Not Recovered/Not Resolved]
  - Back injury [Recovered/Resolved]
  - Pneumonia [Recovered/Resolved]
  - Fibromyalgia [Not Recovered/Not Resolved]
  - Rheumatoid arthritis [Not Recovered/Not Resolved]
  - Fall [Recovered/Resolved]
  - Nasal septum deviation [Recovered/Resolved]
  - Tooth injury [Recovered/Resolved]
  - Swelling [Recovered/Resolved]
  - Anxiety [Not Recovered/Not Resolved]
  - Migraine [Not Recovered/Not Resolved]
  - Sleep disorder [Not Recovered/Not Resolved]
  - Arthritis [Not Recovered/Not Resolved]
  - Constipation [Not Recovered/Not Resolved]
